FAERS Safety Report 23346283 (Version 3)
Quarter: 2024Q1

REPORT INFORMATION
  Report Type: Spontaneous
  Country: NL (occurrence: NL)
  Receive Date: 20231228
  Receipt Date: 20240222
  Transmission Date: 20240410
  Serious: Yes (Life-Threatening, Hospitalization, Other)
  Sender: FDA-Public Use
  Company Number: NL-PFIZER INC-202300450458

PATIENT
  Age: 10 Year
  Sex: Male
  Weight: 50 kg

DRUGS (4)
  1. NGENLA [Suspect]
     Active Substance: SOMATROGON-GHLA
     Indication: Septic shock
     Dosage: 24 MG (1ST INJECTION)
     Route: 058
     Dates: start: 20231209, end: 20231209
  2. NGENLA [Suspect]
     Active Substance: SOMATROGON-GHLA
     Indication: Adrenocortical insufficiency acute
     Dosage: 24 MG (SECOND INJECTION)
     Route: 058
     Dates: start: 20231216
  3. LEVOTHYROXINE [Concomitant]
     Active Substance: LEVOTHYROXINE\LEVOTHYROXINE SODIUM
     Indication: Blood thyroid stimulating hormone decreased
     Dosage: 112 (NO DOSE UNIT REPORTED, 1X/DAY, SINCE SEVERAL YEARS
  4. HYDROCORTISONE [Concomitant]
     Active Substance: HYDROCORTISONE
     Indication: Adrenocorticotropic hormone deficiency
     Dosage: 5-3-2- MG PER DAY, SINCE SEVERAL YEARS

REACTIONS (7)
  - Hypopituitarism [Not Recovered/Not Resolved]
  - Influenza [Unknown]
  - Critical illness [Unknown]
  - Pyrexia [Unknown]
  - Guillain-Barre syndrome [Unknown]
  - Neurological examination abnormal [Unknown]
  - Off label use [Unknown]

NARRATIVE: CASE EVENT DATE: 20231201
